FAERS Safety Report 7094461-X (Version None)
Quarter: 2010Q4

REPORT INFORMATION
  Report Type: 
  Country: None (occurrence: None)
  Receive Date: 20101110
  Receipt Date: 20101029
  Transmission Date: 20110411
  Serious: Yes (Hospitalization, Disabling, Other)
  Sender: FDA-Public Use
  Company Number: PHHY2010US54705

PATIENT
  Sex: Female
  Weight: 55 kg

DRUGS (6)
  1. EXJADE [Suspect]
     Indication: IRON OVERLOAD
     Dosage: 500 MG, TID
     Route: 048
     Dates: start: 20060501, end: 20100721
  2. BENADRYL ^ACHE^ [Concomitant]
     Dosage: 25 MG, PRN
     Route: 048
  3. OXYCONTIN [Concomitant]
     Dosage: 40 MG, UNK
  4. ULTRAM [Concomitant]
     Dosage: 50 MG, PRN 1 EVERY 4-6
  5. VITAMIN D [Concomitant]
     Dosage: 50,000 UNITS 2 X WK
     Route: 048
  6. FOLIC ACID [Concomitant]
     Dosage: 1 MG, UNK
     Route: 048

REACTIONS (5)
  - DEAFNESS NEUROSENSORY [None]
  - DEAFNESS UNILATERAL [None]
  - SERUM FERRITIN INCREASED [None]
  - SICKLE CELL ANAEMIA WITH CRISIS [None]
  - TINNITUS [None]
